FAERS Safety Report 26053092 (Version 1)
Quarter: 2025Q4

REPORT INFORMATION
  Report Type: Report from Study
  Country: US (occurrence: US)
  Receive Date: 20251117
  Receipt Date: 20251117
  Transmission Date: 20260117
  Serious: Yes (Other)
  Sender: MYLAN
  Company Number: US-MYLANLABS-2025M1097120

PATIENT

DRUGS (2)
  1. CLOZAPINE [Interacting]
     Active Substance: CLOZAPINE
     Indication: Antipsychotic therapy
     Dosage: UNK
  2. COTRIMOXAZOLE [Interacting]
     Active Substance: SULFAMETHOXAZOLE\TRIMETHOPRIM
     Indication: Antibiotic therapy
     Dosage: UNK

REACTIONS (2)
  - Neutropenia [Recovered/Resolved]
  - Drug interaction [Recovered/Resolved]
